FAERS Safety Report 6914545-3 (Version None)
Quarter: 2010Q3

REPORT INFORMATION
  Report Type: 
  Country: None (occurrence: None)
  Receive Date: 20100809
  Receipt Date: 20100802
  Transmission Date: 20110219
  Serious: Yes (Other)
  Sender: FDA-Public Use
  Company Number: US-ELI_LILLY_AND_COMPANY-US200806004148

PATIENT
  Sex: Female
  Weight: 97.959 kg

DRUGS (4)
  1. BYETTA [Suspect]
     Indication: TYPE 1 DIABETES MELLITUS
     Dosage: 5 UG, 2/D
     Route: 058
     Dates: start: 20070101
  2. BYETTA [Suspect]
     Dosage: 10 UG, 2/D
     Route: 058
     Dates: end: 20100101
  3. INSULIN [Concomitant]
     Indication: INSULIN-REQUIRING TYPE 2 DIABETES MELLITUS
     Dosage: UNK, AS NEEDED
  4. HUMULIN 70/30 [Concomitant]
     Indication: TYPE 1 DIABETES MELLITUS
     Dosage: UNK, 3/D
     Route: 058

REACTIONS (5)
  - BLOOD GLUCOSE DECREASED [None]
  - DECREASED APPETITE [None]
  - HYPOGLYCAEMIA UNAWARENESS [None]
  - OFF LABEL USE [None]
  - WEIGHT DECREASED [None]
